FAERS Safety Report 9384783 (Version 1)
Quarter: 2013Q3

REPORT INFORMATION
  Report Type: Spontaneous
  Country: NO (occurrence: NO)
  Receive Date: 20130705
  Receipt Date: 20130705
  Transmission Date: 20140515
  Serious: Yes (Other)
  Sender: FDA-Public Use
  Company Number: NO-ELI_LILLY_AND_COMPANY-NO201306004793

PATIENT
  Sex: Male
  Weight: 82 kg

DRUGS (7)
  1. ALIMTA [Suspect]
     Indication: ADENOCARCINOMA
     Dosage: 500 MG/M2, UNK
     Route: 042
     Dates: start: 20111223, end: 20121102
  2. TENORMIN [Concomitant]
     Dosage: 100 MG, UNK
  3. DIURAL [Concomitant]
     Dosage: 20 MG, QOD
  4. FRAGMIN [Concomitant]
     Dosage: UNK UNK, SINGLE
  5. VITAMIN B12 [Concomitant]
  6. FOLIC ACID [Concomitant]
     Dosage: 0.4 MG, UNK
  7. MEDROL [Concomitant]

REACTIONS (1)
  - Cardiomyopathy [Recovering/Resolving]
